FAERS Safety Report 11072944 (Version 2)
Quarter: 2015Q2

REPORT INFORMATION
  Report Type: Report from Study
  Country: KR (occurrence: KR)
  Receive Date: 20150428
  Receipt Date: 20150505
  Transmission Date: 20150821
  Serious: Yes (Death, Other)
  Sender: FDA-Public Use
  Company Number: KR-PFIZER INC-2015140730

PATIENT
  Sex: Male
  Weight: 58 kg

DRUGS (7)
  1. BROMHEXINE [Concomitant]
     Active Substance: BROMHEXINE
     Indication: PROPHYLAXIS
     Dosage: UNK
     Route: 042
     Dates: start: 20101102
  2. TYGACIL [Suspect]
     Active Substance: TIGECYCLINE
     Indication: PNEUMONIA
  3. DORMICUM /00036201/ [Concomitant]
     Active Substance: NITRAZEPAM
     Indication: PROPHYLAXIS
     Dosage: UNK
     Route: 042
     Dates: start: 20101102
  4. CURAN [Concomitant]
     Indication: PROPHYLAXIS AGAINST GASTROINTESTINAL ULCER
     Dosage: UNK
     Route: 042
     Dates: start: 20101115
  5. TYGACIL [Suspect]
     Active Substance: TIGECYCLINE
     Indication: PERITONITIS
     Dosage: 100 MG, DAILY
     Route: 042
     Dates: start: 20110101
  6. COLISTIMETHATE [Concomitant]
     Active Substance: COLISTIMETHATE SODIUM
     Indication: PNEUMONIA
     Dosage: UNK
     Route: 042
     Dates: start: 20110101
  7. MAGNESIUM [Concomitant]
     Active Substance: MAGNESIUM
     Indication: PROPHYLAXIS
     Dosage: UNK
     Route: 042
     Dates: start: 20101105

REACTIONS (1)
  - Bone marrow failure [Fatal]

NARRATIVE: CASE EVENT DATE: 20110101
